FAERS Safety Report 21650059 (Version 1)
Quarter: 2022Q4

REPORT INFORMATION
  Report Type: Other
  Country: TW (occurrence: TW)
  Receive Date: 20221128
  Receipt Date: 20221128
  Transmission Date: 20230113
  Serious: Yes (Other)
  Sender: FDA-Public Use
  Company Number: TW-ASTELLAS-2022US041975

PATIENT
  Age: 46 Year
  Sex: Female
  Weight: 56.9 kg

DRUGS (13)
  1. XOSPATA [Suspect]
     Active Substance: GILTERITINIB
     Indication: Acute myeloid leukaemia
     Route: 048
     Dates: start: 20211224
  2. XOSPATA [Suspect]
     Active Substance: GILTERITINIB
     Route: 048
     Dates: start: 20220321, end: 20220419
  3. VENETOCLAX [Concomitant]
     Active Substance: VENETOCLAX
     Indication: Acute myeloid leukaemia
     Dosage: UNK UNK, UNKNOWN FREQ.
     Route: 065
     Dates: start: 20211224
  4. VENETOCLAX [Concomitant]
     Active Substance: VENETOCLAX
     Dosage: UNK UNK, UNKNOWN FREQ.
     Route: 065
     Dates: start: 20220209
  5. VENETOCLAX [Concomitant]
     Active Substance: VENETOCLAX
     Route: 065
     Dates: start: 20220316, end: 20220419
  6. AZACITIDINE [Concomitant]
     Active Substance: AZACITIDINE
     Indication: Acute myeloid leukaemia
     Dosage: UNK UNK, UNKNOWN FREQ. (PARTIAL RESPONSE)
     Route: 065
     Dates: start: 20190718
  7. AZACITIDINE [Concomitant]
     Active Substance: AZACITIDINE
     Dosage: 100 MG, UNKNOWN FREQ (AZACITIDINE (75 MG/M2) : 100 MG ON D1-D7).
     Route: 065
     Dates: start: 20220321, end: 20220322
  8. AZACITIDINE [Concomitant]
     Active Substance: AZACITIDINE
     Dosage: 100 MG, UNKNOWN FREQ (AZACITIDINE (75 MG/M2) : 100 MG ON D1-D7)
     Route: 065
     Dates: start: 20220325, end: 20220329
  9. MORCASIN [Concomitant]
     Indication: Prophylaxis
     Dosage: UNK UNK, TWICE DAILY (BID)
     Route: 065
     Dates: start: 20220316
  10. VALTREX [Concomitant]
     Active Substance: VALACYCLOVIR HYDROCHLORIDE
     Indication: Infection prophylaxis
     Dosage: UNK UNK, ONCE DAILY (QD)
     Route: 065
     Dates: start: 20220316
  11. CYTARABINE [Concomitant]
     Active Substance: CYTARABINE
     Indication: Acute myeloid leukaemia
     Dosage: UNK UNK, UNKNOWN FREQ.
     Route: 065
     Dates: start: 20211224, end: 20220102
  12. CYTARABINE\FLUDARABINE\GRANULOCYTE COLONY-STIMULATING FACTOR NOS\IDARU [Concomitant]
     Active Substance: CYTARABINE\FLUDARABINE\GRANULOCYTE COLONY-STIMULATING FACTOR NOS\IDARUBICIN
     Indication: Acute myeloid leukaemia
     Dosage: UNK UNK, UNKNOWN FREQ.
     Route: 065
     Dates: start: 20200401
  13. MIDOSTAURIN [Concomitant]
     Active Substance: MIDOSTAURIN
     Indication: Acute myeloid leukaemia
     Dosage: UNK UNK, UNKNOWN FREQ.
     Route: 065

REACTIONS (4)
  - Pancytopenia [Unknown]
  - Neutropenia [Unknown]
  - Thrombocytopenia [Unknown]
  - Haemoglobin decreased [Unknown]
